FAERS Safety Report 8302918-6 (Version None)
Quarter: 2012Q2

REPORT INFORMATION
  Report Type: 
  Country: None (occurrence: None)
  Receive Date: 20120420
  Receipt Date: 20120416
  Transmission Date: 20120825
  Serious: Yes (Hospitalization)
  Sender: FDA-Public Use
  Company Number: US-AMGEN-USASP2011010363

PATIENT
  Age: 58 Year
  Sex: Female
  Weight: 68.027 kg

DRUGS (4)
  1. ENBREL [Suspect]
     Indication: PSORIATIC ARTHROPATHY
     Dosage: 50 MG, 2 TIMES/WK
     Dates: start: 20090204, end: 20090430
  2. ENBREL [Suspect]
     Indication: RHEUMATOID ARTHRITIS
  3. METHOTREXATE [Concomitant]
     Dosage: UNK
  4. ENBREL [Suspect]
     Indication: PSORIASIS
     Dosage: 50 MG, 2 TIMES/WK
     Route: 058
     Dates: start: 20090201, end: 20090401

REACTIONS (4)
  - CARDIAC FAILURE [None]
  - IMPLANTABLE DEFIBRILLATOR INSERTION [None]
  - CARDIAC PACEMAKER INSERTION [None]
  - ARTERIAL OCCLUSIVE DISEASE [None]
